FAERS Safety Report 19866117 (Version 1)
Quarter: 2021Q3

REPORT INFORMATION
  Report Type: Spontaneous
  Country: BR (occurrence: BR)
  Receive Date: 20210921
  Receipt Date: 20210921
  Transmission Date: 20211014
  Serious: Yes (Other)
  Sender: FDA-Public Use
  Company Number: BR-NOVOPROD-811801

PATIENT
  Age: 44 Year
  Sex: Male
  Weight: 78 kg

DRUGS (2)
  1. NOVOLIN N [Suspect]
     Active Substance: INSULIN HUMAN
     Indication: TYPE 1 DIABETES MELLITUS
     Dosage: 40 IU, QD (30 IU EARLY AND 10 IU BEFORE BEDTIME)
     Route: 065
  2. NOVOLIN R [Suspect]
     Active Substance: INSULIN HUMAN
     Indication: TYPE 1 DIABETES MELLITUS
     Dosage: 16 IU, QD (10 IU BEFORE BREAKFAST AND 6 IU BEFORE DINNER)
     Route: 065

REACTIONS (3)
  - Retinal detachment [Unknown]
  - Diabetic retinopathy [Unknown]
  - Hyperglycaemia [Unknown]
